FAERS Safety Report 6496539-8 (Version None)
Quarter: 2009Q4

REPORT INFORMATION
  Report Type: 
  Country: None (occurrence: None)
  Receive Date: 20091214
  Receipt Date: 20091204
  Transmission Date: 20100525
  Serious: Yes (Other)
  Sender: FDA-Public Use
  Company Number: AU-ABBOTT-09P-008-0612428-00

PATIENT
  Age: 55 Year
  Sex: Male

DRUGS (4)
  1. LIPIDIL [Suspect]
     Indication: METABOLIC DISORDER
     Route: 048
     Dates: start: 20090722, end: 20090927
  2. KARVEZIDE [Concomitant]
     Indication: ESSENTIAL HYPERTENSION
     Dosage: 300/12.5
  3. LIPITOR [Concomitant]
     Indication: UNEVALUABLE EVENT
  4. PROGOUT [Concomitant]
     Indication: GOUT

REACTIONS (1)
  - HEAT RASH [None]
